FAERS Safety Report 9944968 (Version 1)
Quarter: 2014Q1

REPORT INFORMATION
  Report Type: Report from Study
  Country: US (occurrence: US)
  Receive Date: 20140303
  Receipt Date: 20140303
  Transmission Date: 20141002
  Serious: No
  Sender: FDA-Public Use
  Company Number: US-ABBVIE-13P-163-1052548-00

PATIENT
  Age: 44 Year
  Sex: Female

DRUGS (7)
  1. HUMIRA [Suspect]
     Indication: RHEUMATOID ARTHRITIS
     Dates: start: 201012, end: 201211
  2. METHOTREXATE [Concomitant]
  3. OMEPRAZOLE [Concomitant]
  4. LORTAB [Concomitant]
     Dosage: 5/500
  5. CELEBREX [Concomitant]
  6. FOLIC ACID [Concomitant]
  7. AMBIEN [Concomitant]
     Dosage: AT BEDTIME

REACTIONS (2)
  - Drug ineffective [Recovered/Resolved]
  - Lupus-like syndrome [Recovered/Resolved]
